FAERS Safety Report 9760286 (Version 1)
Quarter: 2013Q4

REPORT INFORMATION
  Report Type: Spontaneous
  Country: US (occurrence: US)
  Receive Date: 20131216
  Receipt Date: 20131216
  Transmission Date: 20140711
  Serious: Yes (Disabling)
  Sender: FDA-Public Use
  Company Number: US-GLAXOSMITHKLINE-A1052845A

PATIENT
  Age: 77 Year
  Sex: Male

DRUGS (1)
  1. COREG CR [Suspect]
     Indication: ARRHYTHMIA
     Dosage: 80MG PER DAY
     Route: 048

REACTIONS (3)
  - Somnolence [Not Recovered/Not Resolved]
  - Joint stiffness [Not Recovered/Not Resolved]
  - Abnormal dreams [Not Recovered/Not Resolved]
